FAERS Safety Report 22068240 (Version 1)
Quarter: 2023Q1

REPORT INFORMATION
  Report Type: Spontaneous
  Country: US (occurrence: US)
  Receive Date: 20230307
  Receipt Date: 20230307
  Transmission Date: 20230418
  Serious: No
  Sender: FDA-Public Use
  Company Number: US-TEVA-2023-US-2858863

PATIENT
  Sex: Female

DRUGS (1)
  1. JUNEL FE 1/20 [Suspect]
     Active Substance: ETHINYL ESTRADIOL\NORETHINDRONE ACETATE
     Indication: Contraception
     Dosage: STRENGTH: 1.5 MG / 30 MCG
     Route: 065

REACTIONS (4)
  - Migraine [Unknown]
  - Menstrual disorder [Unknown]
  - Drug effect less than expected [Unknown]
  - Product quality issue [Unknown]
